FAERS Safety Report 4947223-0 (Version None)
Quarter: 2006Q1

REPORT INFORMATION
  Report Type: 
  Country: None (occurrence: None)
  Receive Date: 20060317
  Receipt Date: 20060123
  Transmission Date: 20060701
  Serious: Yes (Death, Hospitalization, Other)
  Sender: FDA-Public Use
  Company Number: PHBS2006BE01272

PATIENT
  Age: 76 Year
  Sex: Female

DRUGS (6)
  1. DIOVAN HCT [Suspect]
     Indication: HYPERTENSION
     Dosage: VALS 160 / HCT 12.5 MG/DAY
     Route: 048
     Dates: start: 20050801
  2. MIXTARD HUMAN 70/30 [Concomitant]
     Indication: DIABETES MELLITUS
  3. ASAFLOW [Concomitant]
     Dosage: 80 MG, UNK
  4. STILNOCT [Concomitant]
  5. TRAZOLAN [Concomitant]
  6. DIOVAN [Suspect]
     Indication: HYPERTENSION
     Dosage: 80 MG/DAY
     Route: 048
     Dates: start: 20060101

REACTIONS (8)
  - BLOOD CREATININE INCREASED [None]
  - BLOOD GLUCOSE FLUCTUATION [None]
  - BLOOD PRESSURE INADEQUATELY CONTROLLED [None]
  - BONE NEOPLASM MALIGNANT [None]
  - CREATININE RENAL CLEARANCE DECREASED [None]
  - HAEMORRHAGE [None]
  - MASS [None]
  - METASTASIS [None]
